FAERS Safety Report 18624787 (Version 1)
Quarter: 2020Q4

REPORT INFORMATION
  Report Type: Report from Study
  Country: DE (occurrence: DE)
  Receive Date: 20201216
  Receipt Date: 20201216
  Transmission Date: 20210114
  Serious: Yes (Life-Threatening, Other)
  Sender: FDA-Public Use
  Company Number: DE-MYLANLABS-2020M1100775

PATIENT
  Age: 70 Year
  Sex: Male
  Weight: 90 kg

DRUGS (54)
  1. ERYFER /00250301/ [Suspect]
     Active Substance: ASCORBIC ACID\FERROUS SULFATE\SODIUM BICARBONATE
     Indication: NUTRITIONAL SUPPLEMENTATION
     Dosage: UNK
     Route: 048
     Dates: start: 19941005, end: 19941006
  2. ZENTROPIL                          /00017401/ [Suspect]
     Active Substance: PHENYTOIN
     Indication: SEIZURE PROPHYLAXIS
     Dosage: 3 SEPARATED DOSES
     Route: 048
     Dates: start: 19940830, end: 19940919
  3. SPIZEF /00454601/ [Suspect]
     Active Substance: CEFUROXIME
     Indication: INFECTION
     Dosage: 2 SEPARATED DOSES
     Route: 042
     Dates: start: 19940919, end: 19940919
  4. LASIX [Suspect]
     Active Substance: FUROSEMIDE
     Indication: OEDEMA
     Dosage: UNK
     Route: 042
     Dates: start: 19940919, end: 19940920
  5. DOBUTREX [Concomitant]
     Active Substance: DOBUTAMINE HYDROCHLORIDE
     Indication: CARDIAC DISORDER
     Dosage: UNK
     Route: 042
     Dates: start: 19940919, end: 19940920
  6. AKRINOR [Concomitant]
     Active Substance: CAFEDRINE HYDROCHLORIDE\THEODRENALINE
     Indication: HYPOTENSION
     Dosage: UNK
     Route: 042
     Dates: start: 19940919, end: 19940919
  7. SPASURET [Concomitant]
     Active Substance: FLAVOXATE HYDROCHLORIDE
     Indication: BLADDER DISORDER
     Dosage: 3 SEPARATED DOSES
     Route: 048
     Dates: start: 19940914, end: 19940918
  8. TRANXILIUM [Suspect]
     Active Substance: CLORAZEPATE DIPOTASSIUM
     Dosage: UNK
     Route: 048
     Dates: start: 19940918, end: 19940918
  9. CLONAZEPAM. [Suspect]
     Active Substance: CLONAZEPAM
     Indication: SEIZURE
     Dosage: 1 MILLIGRAM, TOTAL
     Route: 042
     Dates: start: 19940922, end: 19940922
  10. KALIUMCHLORID [Concomitant]
     Active Substance: POTASSIUM CHLORIDE
     Indication: ELECTROLYTE SUBSTITUTION THERAPY
     Dosage: UNK
     Route: 042
     Dates: start: 19940919, end: 19940920
  11. ARELIX                             /00630801/ [Concomitant]
     Active Substance: PIRETANIDE
     Indication: CARDIAC FAILURE
     Dosage: UNK
     Route: 048
  12. ISOFLURAN [Concomitant]
     Active Substance: ISOFLURANE
     Indication: INDUCTION OF ANAESTHESIA
     Dosage: UNK
     Route: 055
     Dates: start: 19940919, end: 19940919
  13. ADALAT [Concomitant]
     Active Substance: NIFEDIPINE
     Indication: HYPERTONIA
     Dosage: INTERMITTENT DOSING.
     Route: 060
     Dates: end: 19940925
  14. HALOTHANE. [Concomitant]
     Active Substance: HALOTHANE
     Indication: INDUCTION OF ANAESTHESIA
     Dosage: UNK
     Route: 055
     Dates: start: 19940919, end: 19940919
  15. CODEINE W/PHENYLTOLOXAMINE [Suspect]
     Active Substance: CODEINE\PHENYLTOLOXAMINE
     Indication: COUGH
     Dosage: DOSE IRREGULAR OR UNKNOWN.
     Route: 048
     Dates: start: 19941004, end: 19941006
  16. ATOSIL                             /00033002/ [Concomitant]
     Active Substance: PROMETHAZINE HYDROCHLORIDE
     Indication: RESTLESSNESS
     Dosage: UNK
     Route: 042
     Dates: start: 19940920, end: 19940920
  17. TUTOFUSIN OP S [Concomitant]
     Indication: ELECTROLYTE SUBSTITUTION THERAPY
     Dosage: UNK
     Route: 042
     Dates: start: 19940920, end: 19940926
  18. DEHYDROBENZPERIDOL [Concomitant]
     Active Substance: DROPERIDOL
     Indication: INDUCTION OF ANAESTHESIA
     Dosage: 3 SEPARATED DOSES
     Route: 042
     Dates: start: 19940919, end: 19940919
  19. TRACRIUM [Concomitant]
     Active Substance: ATRACURIUM BESYLATE
     Indication: INDUCTION OF ANAESTHESIA
     Dosage: UNK
     Route: 042
     Dates: start: 19940919, end: 19940919
  20. TAVEGIL                            /00137201/ [Concomitant]
     Active Substance: CLEMASTINE FUMARATE
     Indication: HYPERSENSITIVITY
     Dosage: 2 SEPARATED DOSES
     Route: 048
     Dates: start: 19941008
  21. LAUGHING GAS [Concomitant]
     Active Substance: NITROUS OXIDE
     Indication: INDUCTION OF ANAESTHESIA
     Dosage: UNK
     Route: 055
     Dates: start: 19940919, end: 19940919
  22. ACETYLCYSTEINE. [Suspect]
     Active Substance: ACETYLCYSTEINE
     Indication: COUGH
     Dosage: 3 SEPARATED DOSES
     Route: 048
     Dates: start: 19940916, end: 19940919
  23. HEPARIN SODIUM. [Suspect]
     Active Substance: HEPARIN SODIUM
     Indication: THROMBOSIS PROPHYLAXIS
     Dosage: 3 SEPARATED DOSES
     Route: 058
     Dates: start: 19940922, end: 19940926
  24. ELOBACT [Suspect]
     Active Substance: CEFUROXIME AXETIL
     Indication: INFECTION
     Dosage: 2 SEPARATED DOSES
     Route: 048
     Dates: start: 19940926, end: 19941006
  25. TRAPANAL [Concomitant]
     Active Substance: THIOPENTAL SODIUM
     Indication: INDUCTION OF ANAESTHESIA
     Dosage: UNK UNK, TOTAL
     Route: 042
     Dates: start: 19940919, end: 19940919
  26. DIAZEPAM. [Suspect]
     Active Substance: DIAZEPAM
     Indication: SEIZURE
     Dosage: 5 MILLIGRAM, TOTAL
     Route: 042
     Dates: start: 19940922, end: 19940922
  27. PERIAMIN X [Suspect]
     Active Substance: AMINO ACIDS\ELECTROLYTES NOS\XYLITOL
     Indication: NUTRITIONAL SUPPLEMENTATION
     Dosage: UNK
     Route: 042
     Dates: start: 19940922, end: 19940924
  28. COTRIM FORTE [Suspect]
     Active Substance: SULFAMETHOXAZOLE\TRIMETHOPRIM
     Indication: INFECTION
     Dosage: 2 SEPARATED DOSES
     Route: 048
     Dates: start: 19940913, end: 19940918
  29. ADALAT [Concomitant]
     Active Substance: NIFEDIPINE
     Indication: HYPERTONIA
     Dosage: 2 SEPARATED DOSES
     Route: 048
  30. FORTECORTIN                        /00016001/ [Concomitant]
     Active Substance: DEXAMETHASONE
     Indication: PROPHYLAXIS
     Dosage: UNK
     Route: 048
     Dates: end: 19940919
  31. FENTANYL. [Concomitant]
     Active Substance: FENTANYL
     Indication: INDUCTION OF ANAESTHESIA
     Dosage: DOSE REPORTED AS 0.1 (NO UNITS). 5 SEPARATED DOSES
     Route: 042
     Dates: start: 19940919, end: 19940919
  32. ATROPIN                            /00002802/ [Concomitant]
     Indication: INDUCTION OF ANAESTHESIA
     Dosage: UNK
     Route: 042
     Dates: start: 19940919, end: 19940919
  33. ACETYLCYSTEINE. [Suspect]
     Active Substance: ACETYLCYSTEINE
     Dosage: 3 SEPARATED DOSES
     Route: 048
     Dates: start: 19940926, end: 19941004
  34. CODEINE W/PHENYLTOLOXAMINE [Suspect]
     Active Substance: CODEINE\PHENYLTOLOXAMINE
     Dosage: UNK
     Route: 048
     Dates: start: 19940912, end: 19940913
  35. DIAZEPAM. [Suspect]
     Active Substance: DIAZEPAM
     Dosage: 5 MILLIGRAM, TOTAL
     Route: 042
     Dates: start: 19940923, end: 19940923
  36. HAES-STERIL [Suspect]
     Active Substance: HETASTARCH
     Indication: HYPOVOLAEMIA
     Dosage: UNK
     Route: 042
     Dates: start: 19940923, end: 19940926
  37. TAGAMET [Concomitant]
     Active Substance: CIMETIDINE
     Indication: HYPERSENSITIVITY
     Dosage: 2 SEPARATED DOSES
     Route: 048
     Dates: start: 19941008
  38. BEPANTHEN                          /00178901/ [Concomitant]
     Active Substance: DEXPANTHENOL
     Indication: OROPHARYNGEAL PAIN
     Dosage: INTERMITTENT DOSING.
     Route: 048
     Dates: end: 19940914
  39. TRANXILIUM [Suspect]
     Active Substance: CLORAZEPATE DIPOTASSIUM
     Indication: PREMEDICATION
     Dosage: UNK
     Route: 048
     Dates: start: 19940913, end: 19940913
  40. ULCOGANT [Suspect]
     Active Substance: SUCRALFATE
     Indication: ULCER
     Dosage: 3 SEPARATED DOSES
     Route: 048
     Dates: start: 19940926, end: 19941004
  41. TEGRETAL [Suspect]
     Active Substance: CARBAMAZEPINE
     Indication: SEIZURE PROPHYLAXIS
     Dosage: 200 MILLIGRAM, QD
     Route: 048
     Dates: start: 19940920
  42. CONTRADOL /00363501/ [Suspect]
     Active Substance: ASPIRIN\CAFFEINE\CARBROMAL\PHENACETIN
     Indication: PAIN
     Dosage: UNK
     Route: 065
     Dates: start: 19940917, end: 19940917
  43. FORTECORTIN                        /00016001/ [Concomitant]
     Active Substance: DEXAMETHASONE
     Indication: PROPHYLAXIS
     Dosage: UNK
     Route: 042
     Dates: start: 19940919, end: 19940924
  44. BENADRYL [Concomitant]
     Active Substance: DIPHENHYDRAMINE HYDROCHLORIDE
     Indication: COUGH
     Dosage: INTERMITTENT DOSING.
     Route: 048
     Dates: end: 19941006
  45. URBASON                            /00049601/ [Concomitant]
     Active Substance: METHYLPREDNISOLONE
     Indication: HYPERSENSITIVITY
     Dosage: UNK
     Route: 065
     Dates: start: 19941008
  46. OSMOFUNDIN                         /01016301/ [Concomitant]
     Indication: PROPHYLAXIS
     Dosage: UNK
     Route: 042
     Dates: start: 19940919, end: 19940919
  47. EBRANTIL                           /00631801/ [Concomitant]
     Active Substance: URAPIDIL
     Indication: HYPERTENSION
     Dosage: 4 SEPARATED DOSES
     Route: 042
     Dates: start: 19940919, end: 19940919
  48. ACETYLCYSTEINE. [Suspect]
     Active Substance: ACETYLCYSTEINE
     Indication: PRODUCT USED FOR UNKNOWN INDICATION
     Dosage: 2 SEPARATED DOSES
     Route: 048
     Dates: start: 19940921, end: 19940926
  49. SPIZEF                             /00454601/ [Suspect]
     Active Substance: CEFUROXIME
     Indication: PRODUCT USED FOR UNKNOWN INDICATION
     Dosage: 2 SEPARATED DOSES
     Route: 042
     Dates: start: 19940923, end: 19940926
  50. EPANUTIN                           /00017401/ [Suspect]
     Active Substance: PHENYTOIN
     Indication: SEIZURE PROPHYLAXIS
     Dosage: 4 SEPARATED DOSES
     Route: 042
     Dates: start: 19940919, end: 19940921
  51. THROMBOPHOB                        /00027704/ [Concomitant]
     Indication: THROMBOSIS PROPHYLAXIS
     Dosage: VARIABLE DOSE.
     Route: 058
     Dates: end: 19940922
  52. SUCCINYL [Concomitant]
     Active Substance: SUCCINYLCHOLINE CHLORIDE
     Indication: INDUCTION OF ANAESTHESIA
     Dosage: UNK
     Route: 042
     Dates: start: 19940919, end: 19940919
  53. CATAPRESSAN                        /00171101/ [Concomitant]
     Active Substance: CLONIDINE
     Indication: HYPERTONIA
     Dosage: VARIABLE DOSES GIVEN ON 10 AND 13 SEP.
     Route: 058
     Dates: end: 19940913
  54. DICLOFENAC [Concomitant]
     Active Substance: DICLOFENAC
     Indication: PRODUCT USED FOR UNKNOWN INDICATION
     Dosage: UNK
     Route: 048
     Dates: start: 19940913, end: 19940913

REACTIONS (15)
  - Gamma-glutamyltransferase increased [Unknown]
  - Leukocytosis [Unknown]
  - Blister [Recovering/Resolving]
  - Mucosal erosion [Recovering/Resolving]
  - Aspartate aminotransferase increased [Unknown]
  - Stevens-Johnson syndrome [Recovering/Resolving]
  - Alanine aminotransferase increased [Unknown]
  - Pneumonia [Unknown]
  - Blood lactate dehydrogenase increased [Unknown]
  - Conjunctivitis [Recovering/Resolving]
  - Lymphocytosis [Unknown]
  - Blood urea increased [Unknown]
  - Toxic epidermal necrolysis [Unknown]
  - Pyrexia [Recovering/Resolving]
  - Rash [Recovering/Resolving]

NARRATIVE: CASE EVENT DATE: 19941006
